FAERS Safety Report 4725535-3 (Version None)
Quarter: 2005Q3

REPORT INFORMATION
  Report Type: 
  Country: None (occurrence: None)
  Receive Date: 20050722
  Receipt Date: 20050722
  Transmission Date: 20060218
  Serious: Yes (Other)
  Sender: FDA-Public Use
  Company Number: None

PATIENT
  Age: 53 Year
  Sex: Female
  Weight: 52.1637 kg

DRUGS (2)
  1. GEODON [Suspect]
     Indication: DEPRESSION
     Dosage: 40 MG 2X20 DAILY ORAL
     Route: 048
     Dates: start: 20041020, end: 20050115
  2. LEXAPRO [Concomitant]

REACTIONS (6)
  - DIABETES MELLITUS NON-INSULIN-DEPENDENT [None]
  - DIABETIC COMPLICATION [None]
  - HYPERGLYCAEMIA [None]
  - STRESS [None]
  - VISION BLURRED [None]
  - WEIGHT DECREASED [None]
